FAERS Safety Report 4422146-4 (Version None)
Quarter: 2004Q3

REPORT INFORMATION
  Report Type: 
  Country: None (occurrence: None)
  Receive Date: 20040805
  Receipt Date: 20040728
  Transmission Date: 20050211
  Serious: Yes (Disabling, Other)
  Sender: FDA-Public Use
  Company Number: HQWYE792303MAR03

PATIENT
  Age: 61 Year
  Sex: Male

DRUGS (3)
  1. DIMETAPP [Suspect]
     Dosage: ORAL
     Route: 048
  2. DRISTAN [Suspect]
     Dosage: ORAL
     Route: 048
  3. ROBITUSSIN CF (GUAIFENESIN/DEXTROMETHORPHAN/PHENYLPROPANOLAMINE, SYRUP [Suspect]
     Dosage: ORAL
     Route: 048

REACTIONS (2)
  - BLINDNESS [None]
  - CEREBROVASCULAR ACCIDENT [None]
